FAERS Safety Report 15353112 (Version 1)
Quarter: 2018Q3

REPORT INFORMATION
  Report Type: Spontaneous
  Country: US (occurrence: US)
  Receive Date: 20180829
  Receipt Date: 20180829
  Transmission Date: 20181010
  Serious: Yes (Death)
  Sender: FDA-Public Use
  Company Number: None

PATIENT
  Age: 90 Year
  Sex: Female

DRUGS (10)
  1. VITAMIN D [Concomitant]
     Active Substance: CHOLECALCIFEROL
  2. CARVEDILOL. [Concomitant]
     Active Substance: CARVEDILOL
  3. FUROSEMIDE. [Concomitant]
     Active Substance: FUROSEMIDE
  4. EXEMESTANE 25MG TAB [Suspect]
     Active Substance: EXEMESTANE
     Indication: BREAST CANCER
     Route: 048
     Dates: start: 20161108, end: 20180820
  5. EXEMESTANE 25MG TAB [Suspect]
     Active Substance: EXEMESTANE
  6. LISINOPRIL. [Concomitant]
     Active Substance: LISINOPRIL
  7. CALCIUM/D [Concomitant]
  8. HYDROCODONE [Concomitant]
     Active Substance: HYDROCODONE
  9. ISOSORB [Concomitant]
  10. VITAMIN C [Concomitant]
     Active Substance: ASCORBIC ACID

REACTIONS (1)
  - Cerebrovascular accident [None]

NARRATIVE: CASE EVENT DATE: 20180820
